FAERS Safety Report 13890933 (Version 2)
Quarter: 2017Q4

REPORT INFORMATION
  Report Type: Spontaneous
  Country: US (occurrence: US)
  Receive Date: 20170822
  Receipt Date: 20171003
  Transmission Date: 20180320
  Serious: No
  Sender: FDA-Public Use
  Company Number: US-PFIZER INC-2017358997

PATIENT
  Age: 85 Year
  Sex: Female

DRUGS (4)
  1. ROBAXIN [Concomitant]
     Active Substance: METHOCARBAMOL
     Dosage: 500 MG, AS NEEDED
  2. NORCO [Concomitant]
     Active Substance: ACETAMINOPHEN\HYDROCODONE BITARTRATE
     Dosage: UNK UNK, AS NEEDED ([HYDROCODONE BITARTRATE: 10, PARACETAMOL: 325])
  3. CELEBREX [Suspect]
     Active Substance: CELECOXIB
     Indication: ARTHRITIS
     Dosage: 200 MG, DAILY (200 MG 1 DAILY)
     Dates: start: 2002
  4. NEURONTIN [Concomitant]
     Active Substance: GABAPENTIN
     Dosage: 300 MG, AS NEEDED

REACTIONS (3)
  - Pain [Not Recovered/Not Resolved]
  - Therapeutic response decreased [Unknown]
  - Spinal column stenosis [Unknown]
